FAERS Safety Report 7301377-X (Version None)
Quarter: 2011Q1

REPORT INFORMATION
  Report Type: 
  Country: None (occurrence: None)
  Receive Date: 20110218
  Receipt Date: 20110215
  Transmission Date: 20110831
  Serious: Yes (Other)
  Sender: FDA-Public Use
  Company Number: NL-B.I. PHARMACEUTICALS,INC./RIDGEFIELD-2011-NL-00061NL

PATIENT
  Sex: Female
  Weight: 76 kg

DRUGS (7)
  1. CRESTOR [Concomitant]
     Route: 048
  2. ZOPICLON [Concomitant]
     Route: 048
  3. SOTALOL HCL [Concomitant]
     Route: 048
  4. PRADAXA [Suspect]
     Indication: ATRIAL FIBRILLATION
     Dates: start: 20110201
  5. DAGYNIL [Concomitant]
  6. LANOXIN [Concomitant]
     Dosage: 1/8MG
     Route: 048
  7. PANTOZOL [Concomitant]
     Route: 048

REACTIONS (1)
  - TRANSIENT ISCHAEMIC ATTACK [None]
